FAERS Safety Report 7539666-6 (Version None)
Quarter: 2011Q2

REPORT INFORMATION
  Report Type: 
  Country: None (occurrence: None)
  Receive Date: 20110609
  Receipt Date: 20110609
  Transmission Date: 20111010
  Serious: Yes (Life-Threatening, Hospitalization)
  Sender: FDA-Public Use
  Company Number: None

PATIENT
  Age: 23 Year
  Sex: Female
  Weight: 46.7205 kg

DRUGS (1)
  1. VENOFER [Suspect]
     Indication: ANAEMIA
     Dosage: 25MG 1 IV/WK IV DRIP
     Route: 041

REACTIONS (5)
  - JOINT SWELLING [None]
  - MUSCLE DISORDER [None]
  - DYSPNOEA [None]
  - HAEMORRHAGE [None]
  - SWELLING [None]
